FAERS Safety Report 10185928 (Version 2)
Quarter: 2014Q2

REPORT INFORMATION
  Report Type: Report from Study
  Country: US (occurrence: US)
  Receive Date: 20140521
  Receipt Date: 20140618
  Transmission Date: 20141212
  Serious: Yes (Death, Hospitalization)
  Sender: FDA-Public Use
  Company Number: US-ACTELION-A-NJ2014-99192

PATIENT
  Age: 73 Year
  Sex: Female

DRUGS (2)
  1. VENTAVIS [Suspect]
     Indication: PULMONARY ARTERIAL HYPERTENSION
     Dosage: 5 UNK, 6-9XDAY
     Route: 055
     Dates: start: 201103
  2. SILDENAFIL [Concomitant]

REACTIONS (2)
  - Cardiac failure [Fatal]
  - Mitral valve incompetence [Fatal]
